FAERS Safety Report 5032127-8 (Version None)
Quarter: 2006Q2

REPORT INFORMATION
  Report Type: 
  Country: None (occurrence: None)
  Receive Date: 20060619
  Receipt Date: 20060613
  Transmission Date: 20061013
  Serious: Yes (Hospitalization)
  Sender: FDA-Public Use
  Company Number: E2090-00020-SPO-US

PATIENT
  Age: 40 Year
  Sex: Female

DRUGS (3)
  1. ZONEGRAN [Suspect]
     Dates: start: 20060101, end: 20060101
  2. COPAXONE [Concomitant]
  3. LEXAPRO [Concomitant]

REACTIONS (3)
  - APLASTIC ANAEMIA [None]
  - RASH PUSTULAR [None]
  - WHITE BLOOD CELL COUNT DECREASED [None]
